FAERS Safety Report 20013317 (Version 1)
Quarter: 2021Q4

REPORT INFORMATION
  Report Type: Spontaneous
  Country: FR (occurrence: FR)
  Receive Date: 20211029
  Receipt Date: 20211029
  Transmission Date: 20220303
  Serious: Yes (Death)
  Sender: FDA-Public Use
  Company Number: None

PATIENT
  Age: 94 Year
  Sex: Male
  Weight: 58 kg

DRUGS (11)
  1. DULOXETINE [Interacting]
     Active Substance: DULOXETINE
     Indication: Depression
     Dosage: 2 DF
     Route: 048
     Dates: start: 20210828, end: 20210831
  2. ELIQUIS [Interacting]
     Active Substance: APIXABAN
     Indication: Cardiovascular event prophylaxis
     Dosage: 2 DF
     Route: 048
     Dates: start: 20210827, end: 20210830
  3. ACETAMINOPHEN [Concomitant]
     Active Substance: ACETAMINOPHEN
     Dosage: 2 DF
     Route: 054
     Dates: start: 20210831, end: 20210901
  4. ACETAMINOPHEN [Concomitant]
     Active Substance: ACETAMINOPHEN
     Dosage: 4 DF
     Route: 048
     Dates: start: 20210829, end: 20210829
  5. LANSOPRAZOLE [Concomitant]
     Active Substance: LANSOPRAZOLE
     Dosage: 15 MG
     Route: 048
     Dates: start: 20210827, end: 20210830
  6. OXAZEPAM [Concomitant]
     Active Substance: OXAZEPAM
     Dosage: 10 MG, THERAPY START AND END DATE: ASKU
     Route: 058
  7. FOLIC ACID [Concomitant]
     Active Substance: FOLIC ACID
     Dosage: 10 MG
     Route: 048
     Dates: start: 20210827, end: 20210831
  8. FINASTERIDE [Concomitant]
     Active Substance: FINASTERIDE
     Dosage: 5 MG
     Route: 048
     Dates: start: 20210828, end: 20210831
  9. MORPHINE [Concomitant]
     Active Substance: MORPHINE
     Dosage: 0.5 MG, THERAPY START AND END DATE: ASKU
     Route: 058
  10. AUGMENTIN [Concomitant]
     Active Substance: AMOXICILLIN\CLAVULANATE POTASSIUM
     Dosage: 5 DF, 500 MG / 62.5 MG ADULTS, (AMOXICILLIN / CLAVULANIC ACID RATIO: 8/1)
     Route: 048
     Dates: start: 20210827, end: 20210830
  11. POLYETHYLENE GLYCOLS [Concomitant]
     Active Substance: POLYETHYLENE GLYCOLS
     Dosage: 2 DF
     Route: 048
     Dates: start: 20210828, end: 20210831

REACTIONS (2)
  - Subdural haematoma [Fatal]
  - Drug interaction [Fatal]

NARRATIVE: CASE EVENT DATE: 20210831
